FAERS Safety Report 16134653 (Version 1)
Quarter: 2019Q1

REPORT INFORMATION
  Report Type: Spontaneous
  Country: US (occurrence: US)
  Receive Date: 20190331
  Receipt Date: 20190331
  Transmission Date: 20190418
  Serious: Yes (Other)
  Sender: FDA-Public Use
  Company Number: US-AMGEN-USASP2019048010

PATIENT

DRUGS (2)
  1. ENBREL [Suspect]
     Active Substance: ETANERCEPT
     Indication: RHEUMATOID ARTHRITIS
     Dosage: UNK
     Route: 065
  2. PROLIA [Suspect]
     Active Substance: DENOSUMAB
     Indication: PRODUCT USED FOR UNKNOWN INDICATION
     Dosage: UNK
     Route: 065

REACTIONS (12)
  - Rheumatoid arthritis [Unknown]
  - Sleep disorder due to general medical condition, insomnia type [Unknown]
  - Blood cholesterol increased [Unknown]
  - Constipation [Unknown]
  - Dyspnoea [Unknown]
  - Dyspepsia [Unknown]
  - Pain [Unknown]
  - Skin disorder [Unknown]
  - Lethargy [Unknown]
  - Adverse drug reaction [Unknown]
  - Back pain [Unknown]
  - Abdominal discomfort [Unknown]
